FAERS Safety Report 19468625 (Version 1)
Quarter: 2021Q2

REPORT INFORMATION
  Report Type: Spontaneous
  Country: US (occurrence: US)
  Receive Date: 20210628
  Receipt Date: 20210628
  Transmission Date: 20210717
  Serious: No
  Sender: FDA-Public Use
  Company Number: US-AMGEN-USASP2021095889

PATIENT
  Sex: Male

DRUGS (2)
  1. SENSIPAR [Suspect]
     Active Substance: CINACALCET HYDROCHLORIDE
     Dosage: 30 MILLIGRAM, BID
     Route: 065
  2. SENSIPAR [Suspect]
     Active Substance: CINACALCET HYDROCHLORIDE
     Indication: HYPERPARATHYROIDISM
     Dosage: 60 MILLIGRAM, QD
     Route: 065

REACTIONS (3)
  - Abdominal pain upper [Not Recovered/Not Resolved]
  - Drug ineffective [Unknown]
  - Nausea [Not Recovered/Not Resolved]
